FAERS Safety Report 9143976 (Version 1)
Quarter: 2013Q1

REPORT INFORMATION
  Report Type: Spontaneous
  Country: AU (occurrence: AU)
  Receive Date: 20130306
  Receipt Date: 20130306
  Transmission Date: 20140127
  Serious: Yes (Other)
  Sender: FDA-Public Use
  Company Number: AU-ROCHE-1196959

PATIENT
  Age: 36 Year
  Sex: Female

DRUGS (3)
  1. XELODA [Suspect]
     Indication: PRODUCT USED FOR UNKNOWN INDICATION
     Route: 065
  2. CARBOPLATIN [Concomitant]
  3. GEMCITABINE [Concomitant]

REACTIONS (4)
  - Malignant neoplasm progression [Unknown]
  - Pericardial effusion [Unknown]
  - Pleural effusion [Unknown]
  - Performance status decreased [Unknown]
